FAERS Safety Report 8134943-2 (Version None)
Quarter: 2012Q1

REPORT INFORMATION
  Report Type: 
  Country: None (occurrence: None)
  Receive Date: 20120214
  Receipt Date: 20120207
  Transmission Date: 20120608
  Serious: Yes (Hospitalization)
  Sender: FDA-Public Use
  Company Number: JP-PFIZER INC-2012033897

PATIENT
  Age: 42 Year
  Sex: Male
  Weight: 76 kg

DRUGS (24)
  1. SUNITINIB MALATE [Suspect]
     Indication: GASTROINTESTINAL STROMAL TUMOUR
     Dosage: 50 MG, 1X/DAY
     Route: 048
     Dates: start: 20080925, end: 20080929
  2. SUNITINIB MALATE [Suspect]
     Dosage: 25 MG, 1X/DAY
     Dates: start: 20090407, end: 20090413
  3. OLOPATADINE HCL [Concomitant]
     Indication: PRURITUS
     Dosage: 5 MG, 2X/DAY
     Route: 048
  4. SUNITINIB MALATE [Suspect]
     Dosage: 37.5 MG, 1X/DAY
     Dates: start: 20081209, end: 20081225
  5. SUNITINIB MALATE [Suspect]
     Dosage: 37.5 MG, 1X/DAY
     Dates: start: 20090123, end: 20090205
  6. SUNITINIB MALATE [Suspect]
     Dosage: 37.5 MG, 1X/DAY
     Dates: start: 20090224, end: 20090309
  7. SUNITINIB MALATE [Suspect]
     Dosage: 50 MG, 1X/DAY
     Dates: start: 20090604
  8. SUNITINIB MALATE [Suspect]
     Dosage: 37.5 MG, 1X/DAY
     Dates: end: 20091219
  9. SUNITINIB MALATE [Suspect]
     Dosage: 37.5 MG, 1X/DAY
     Dates: start: 20100323, end: 20100606
  10. LASIX [Concomitant]
     Indication: GASTROINTESTINAL STROMAL TUMOUR
     Dosage: 20 MG, 1X/DAY
     Route: 048
  11. SUNITINIB MALATE [Suspect]
     Dosage: 37.5 MG, 1X/DAY
     Dates: start: 20090518
  12. ZOLPIDEM [Concomitant]
     Indication: PROPHYLAXIS
     Dosage: 5 MG, UNK
     Route: 048
  13. LOXOPROFEN [Concomitant]
     Indication: GASTROINTESTINAL STROMAL TUMOUR
     Dosage: 60 MG, 3X/DAY
     Route: 048
  14. SUNITINIB MALATE [Suspect]
     Dosage: 37.5 MG, 1X/DAY
     Dates: start: 20090430, end: 20090514
  15. SUNITINIB MALATE [Suspect]
     Dosage: 50 MG, 1X/DAY
     Dates: end: 20091219
  16. SELBEX [Concomitant]
     Indication: PROPHYLAXIS
     Dosage: 50 MG, 3X/DAY
     Route: 048
  17. SUNITINIB MALATE [Suspect]
     Dosage: 37.5 MG, 1X/DAY
     Dates: start: 20081028
  18. SUNITINIB MALATE [Suspect]
     Dosage: 37.5 MG, 1X/DAY
     Dates: start: 20090103, end: 20090116
  19. SUNITINIB MALATE [Suspect]
     Dosage: UNK
     Dates: start: 20100222, end: 20100227
  20. SUNITINIB MALATE [Suspect]
     Dosage: UNK
     Dates: start: 20100303, end: 20100313
  21. MAGNESIUM OXIDE [Concomitant]
     Indication: PROPHYLAXIS
     Dosage: UNK
     Route: 048
  22. SUNITINIB MALATE [Suspect]
     Dosage: 37.5 MG, 1X/DAY
  23. SUNITINIB MALATE [Suspect]
     Dosage: 37.5 MG, 1X/DAY
     Dates: start: 20100612
  24. FERROUS CITRATE [Concomitant]
     Dosage: 50 MG, 2X/DAY
     Route: 048

REACTIONS (4)
  - HAEMOPTYSIS [None]
  - PLEURAL EFFUSION [None]
  - INTERSTITIAL LUNG DISEASE [None]
  - PNEUMONITIS [None]
